FAERS Safety Report 5397946-7 (Version None)
Quarter: 2007Q3

REPORT INFORMATION
  Report Type: 
  Country: None (occurrence: None)
  Receive Date: 20070726
  Receipt Date: 20070718
  Transmission Date: 20080115
  Serious: Yes (Hospitalization, Other)
  Sender: FDA-Public Use
  Company Number: CH-JNJFOC-20070705235

PATIENT
  Weight: 3.15 kg

DRUGS (8)
  1. TOPAMAX [Suspect]
     Indication: DRUG EXPOSURE DURING PREGNANCY
     Dosage: 9 GESTATIONAL WEEKS EXPOSURE
  2. MORPHINE [Suspect]
     Indication: DRUG EXPOSURE DURING PREGNANCY
     Dosage: 20 MG 3-5 TIMES DAILY, AS NEEDED; 0-36 GESTATIONAL WEEKS EXPOSURE
  3. MORPHINE [Suspect]
     Dosage: 0-36 GESTATIONAL WEEKS EXPOSURE
  4. CLONIDINE [Concomitant]
     Indication: DRUG EXPOSURE DURING PREGNANCY
     Dosage: 0-36 GESTATIONAL WEEKS EXPOSURE
  5. ZOPICION [Concomitant]
     Indication: DRUG EXPOSURE DURING PREGNANCY
     Dosage: 7.5 MG ONCE DAILY, AS NEEDED; 8 GESTATIONAL WEEKS EXPOSURE
  6. PAROXETINE [Concomitant]
     Indication: DRUG EXPOSURE DURING PREGNANCY
     Dosage: 0-36 GESTATIONAL WEEKS EXPOSURE
  7. DIAZEPAM [Concomitant]
     Indication: DRUG EXPOSURE DURING PREGNANCY
     Dosage: 2.5 MG ONCE DAILY AS NEEDED; 20-36 GESTATIONAL WEEKS EXPOSURE
  8. METRONIDAZOLE HCL [Concomitant]
     Indication: DRUG EXPOSURE DURING PREGNANCY
     Dosage: 30-36 GESTATIONAL WEEKS EXPOSURE

REACTIONS (3)
  - DRUG WITHDRAWAL SYNDROME [None]
  - PREMATURE BABY [None]
  - PYREXIA [None]
